FAERS Safety Report 9242713 (Version 2)
Quarter: 2013Q2

REPORT INFORMATION
  Report Type: Spontaneous
  Country: GB (occurrence: GB)
  Receive Date: 20130419
  Receipt Date: 20130423
  Transmission Date: 20140414
  Serious: Yes (Other)
  Sender: FDA-Public Use
  Company Number: GB-ROCHE-1216370

PATIENT
  Age: 50 Year
  Sex: Female
  Weight: 78.2 kg

DRUGS (1)
  1. HERCEPTIN [Suspect]
     Indication: BREAST CANCER
     Route: 051
     Dates: start: 20120505, end: 20130408

REACTIONS (3)
  - Skin fissures [Recovered/Resolved]
  - Pain in extremity [Recovered/Resolved]
  - Rhinorrhoea [Recovered/Resolved]
